FAERS Safety Report 22237705 (Version 1)
Quarter: 2023Q2

REPORT INFORMATION
  Report Type: Other
  Country: CA (occurrence: CA)
  Receive Date: 20230421
  Receipt Date: 20230421
  Transmission Date: 20230722
  Serious: Yes (Death)
  Sender: FDA-Public Use
  Company Number: CA-CELLTRION INC.-2023CA008079

PATIENT

DRUGS (15)
  1. RITUXIMAB [Suspect]
     Active Substance: RITUXIMAB
     Indication: Rheumatoid arthritis
     Dosage: 1000 MILLIGRAM
     Route: 041
  2. CALCIUM [Concomitant]
     Active Substance: CALCIUM
  3. LEVOTHYROXINE SODIUM [Concomitant]
     Active Substance: LEVOTHYROXINE SODIUM
     Route: 065
  4. LOSEC [Concomitant]
     Active Substance: OMEPRAZOLE
  5. MAGNESIUM [Concomitant]
     Active Substance: MAGNESIUM
  6. PROLIA [Concomitant]
     Active Substance: DENOSUMAB
  7. PROPRANOLOL [Concomitant]
     Active Substance: PROPRANOLOL HYDROCHLORIDE
  8. RAMIPRIL [Concomitant]
     Active Substance: RAMIPRIL
  9. RANITIDINE [Concomitant]
     Active Substance: RANITIDINE
  10. ALBUTEROL [Concomitant]
     Active Substance: ALBUTEROL
  11. SENOKOT [Concomitant]
     Active Substance: SENNOSIDES
  12. TELMISARTAN [Concomitant]
     Active Substance: TELMISARTAN
  13. TRAMADOL HYDROCHLORIDE [Concomitant]
     Active Substance: TRAMADOL HYDROCHLORIDE
  14. TYLENOL EXTRA STRENGTH [Concomitant]
     Active Substance: ACETAMINOPHEN
  15. VITAMIN B12 [Concomitant]
     Active Substance: CYANOCOBALAMIN

REACTIONS (1)
  - Death [Fatal]
